FAERS Safety Report 11991887 (Version 1)
Quarter: 2016Q1

REPORT INFORMATION
  Report Type: Spontaneous
  Country: US (occurrence: None)
  Receive Date: 20160202
  Receipt Date: 20160202
  Transmission Date: 20160526
  Serious: Yes (Other)
  Sender: FDA-Public Use
  Company Number: None

PATIENT
  Age: 31 Year
  Sex: Male
  Weight: 99.79 kg

DRUGS (2)
  1. LATUDA [Suspect]
     Active Substance: LURASIDONE HYDROCHLORIDE
     Indication: DEPRESSION
     Route: 048
  2. VITAMINS D [Concomitant]

REACTIONS (3)
  - Anxiety [None]
  - Product quality issue [None]
  - Feeling abnormal [None]

NARRATIVE: CASE EVENT DATE: 20160201
